FAERS Safety Report 4310440-7 (Version None)
Quarter: 2004Q1

REPORT INFORMATION
  Report Type: 
  Country: None (occurrence: None)
  Receive Date: 20040303
  Receipt Date: 20040223
  Transmission Date: 20041129
  Serious: Yes (Hospitalization, Other)
  Sender: FDA-Public Use
  Company Number: PHEH2004US02239

PATIENT
  Sex: Male

DRUGS (6)
  1. STARLIX [Suspect]
     Indication: DIABETES MELLITUS NON-INSULIN-DEPENDENT
     Dosage: 120 MG, TID
     Route: 048
     Dates: start: 20010201
  2. AVANDIA [Concomitant]
  3. METOPROLOL [Concomitant]
  4. DIGOXIN [Concomitant]
  5. LASIX [Concomitant]
  6. ARICEPT [Concomitant]

REACTIONS (5)
  - CARDIAC FAILURE [None]
  - CARDIAC FAILURE CONGESTIVE [None]
  - CONDITION AGGRAVATED [None]
  - HYPOGLYCAEMIA [None]
  - INFECTION [None]
